FAERS Safety Report 19609009 (Version 3)
Quarter: 2021Q3

REPORT INFORMATION
  Report Type: Spontaneous
  Country: CN (occurrence: CN)
  Receive Date: 20210726
  Receipt Date: 20210831
  Transmission Date: 20211014
  Serious: Yes (Hospitalization)
  Sender: FDA-Public Use
  Company Number: CN-SA-2021SA243300

PATIENT
  Age: 79 Year
  Sex: Male

DRUGS (18)
  1. DAPAGLIFLOZIN. [Concomitant]
     Active Substance: DAPAGLIFLOZIN
     Indication: TYPE 2 DIABETES MELLITUS
     Dosage: 10 MG, QD
     Route: 048
  2. MOMETASONE [Concomitant]
     Active Substance: MOMETASONE
     Indication: ECZEMA
     Dosage: 1?2 TIMES A DAY
     Route: 061
  3. BEPOTASTINE [Concomitant]
     Active Substance: BEPOTASTINE
     Indication: ECZEMA
  4. HALOMETASONE;TRICLOSAN [Concomitant]
     Indication: ECZEMA
     Dosage: UNK UNK, BID
     Route: 061
  5. ACARBOSE. [Concomitant]
     Active Substance: ACARBOSE
     Indication: TYPE 2 DIABETES MELLITUS
     Dosage: 50?100MG, TID
     Route: 048
  6. NIFEDIPINE. [Concomitant]
     Active Substance: NIFEDIPINE
     Indication: HYPERTENSION
     Dosage: 30 MG, QD
  7. DUPIXENT [Suspect]
     Active Substance: DUPILUMAB
     Indication: ECZEMA
     Dosage: 600 MG, 1X
     Route: 058
     Dates: start: 20210714
  8. MONTELUKAST SODIUM. [Concomitant]
     Active Substance: MONTELUKAST SODIUM
     Dosage: 10 MG, QD
     Route: 048
  9. RECOMBINANT HUMAN INTERLEUKIN?2 [Concomitant]
     Active Substance: ALDESLEUKIN
     Dosage: 50 UNK, QOD
     Route: 058
  10. BORIC ACID AND ZINC OXIDE [Concomitant]
     Indication: ECZEMA
     Dosage: UNK UNK, QD
     Route: 061
  11. METFORMIN HYDROCHLORIDE. [Concomitant]
     Active Substance: METFORMIN HYDROCHLORIDE
     Indication: TYPE 2 DIABETES MELLITUS
     Dosage: 0.5 G, TID
     Route: 048
  12. DIPHENHYDRAMINE. [Concomitant]
     Active Substance: DIPHENHYDRAMINE
     Indication: HYPERSENSITIVITY
  13. FEXOFENADINE [Concomitant]
     Active Substance: FEXOFENADINE HYDROCHLORIDE
     Dosage: 60 MG, BID
     Route: 048
  14. SODIUM THIOSULFATE [Concomitant]
     Active Substance: SODIUM THIOSULFATE
     Dosage: 0.64 G, QOD
  15. EBASTINE [Concomitant]
     Active Substance: EBASTINE
     Dosage: 10 MG
     Route: 048
  16. SODIUM CHLORIDE. [Concomitant]
     Active Substance: SODIUM CHLORIDE
     Dosage: 1 ML, QD, 1/DAY, 3 VIALS
     Route: 058
  17. DIPHENHYDRAMINE. [Concomitant]
     Active Substance: DIPHENHYDRAMINE
     Indication: PRURITUS
     Dosage: 20 MG
     Route: 030
  18. TRIPTERYGIUM WILFORDII GLYCOSIDE EXTRACT [Concomitant]
     Active Substance: HERBALS
     Indication: IMMUNOMODULATORY THERAPY
     Dosage: 20 MG, TID
     Route: 048

REACTIONS (9)
  - Drug eruption [Recovering/Resolving]
  - Dry skin [Unknown]
  - Pruritus [Recovering/Resolving]
  - Hospitalisation [Unknown]
  - Papule [Recovering/Resolving]
  - Scratch [Recovering/Resolving]
  - Macule [Recovering/Resolving]
  - Erythema [Recovering/Resolving]
  - Scab [Recovering/Resolving]

NARRATIVE: CASE EVENT DATE: 20210716
